FAERS Safety Report 13158055 (Version 1)
Quarter: 2017Q1

REPORT INFORMATION
  Report Type: Report from Study
  Country: US (occurrence: US)
  Receive Date: 20170127
  Receipt Date: 20170127
  Transmission Date: 20170428
  Serious: No
  Sender: FDA-Public Use
  Company Number: PHEH2017US002691

PATIENT
  Sex: Female

DRUGS (1)
  1. EXELON [Suspect]
     Active Substance: RIVASTIGMINE TARTRATE
     Indication: PRODUCT USED FOR UNKNOWN INDICATION
     Route: 062

REACTIONS (6)
  - Bronchitis [Unknown]
  - Lung disorder [Unknown]
  - Cardiac disorder [Unknown]
  - Amnesia [Unknown]
  - General physical health deterioration [Unknown]
  - Drug ineffective [Unknown]
